FAERS Safety Report 5350729-6 (Version None)
Quarter: 2007Q2

REPORT INFORMATION
  Report Type: 
  Country: None (occurrence: None)
  Receive Date: 20070608
  Receipt Date: 20070606
  Transmission Date: 20071010
  Serious: Yes (Hospitalization)
  Sender: FDA-Public Use
  Company Number: US-ELI_LILLY_AND_COMPANY-US200705002453

PATIENT
  Age: 71 Year
  Sex: Female

DRUGS (10)
  1. TERIPARATIDE [Suspect]
     Indication: OSTEOPOROSIS
     Dosage: UNK, UNK
     Route: 058
     Dates: start: 20060511
  2. VERAPAMIL [Concomitant]
     Indication: HYPERTENSION
  3. TOPROL-XL [Concomitant]
     Indication: HYPERTENSION
  4. COUMADIN [Concomitant]
     Indication: COAGULOPATHY
  5. SYNTHROID [Concomitant]
  6. PROZAC [Concomitant]
     Indication: DEPRESSION
  7. LASIX [Concomitant]
     Indication: HYPERTENSION
  8. TRAZODONE HCL [Concomitant]
     Indication: SEDATION
  9. LIPITOR [Concomitant]
     Indication: HYPERLIPIDAEMIA
  10. MULTI-VITAMIN [Concomitant]
     Indication: VITAMIN SUPPLEMENTATION

REACTIONS (1)
  - LUNG ADENOCARCINOMA [None]
